FAERS Safety Report 15481995 (Version 4)
Quarter: 2018Q4

REPORT INFORMATION
  Report Type: Spontaneous
  Country: IN (occurrence: IN)
  Receive Date: 20181010
  Receipt Date: 20181108
  Transmission Date: 20190205
  Serious: Yes (Hospitalization)
  Sender: FDA-Public Use
  Company Number: IN-JNJFOC-20181000788

PATIENT
  Age: 21 Year
  Sex: Female

DRUGS (12)
  1. DELAMANID [Suspect]
     Active Substance: DELAMANID
     Indication: TUBERCULOSIS
     Route: 048
     Dates: start: 20170821
  2. LINOSPAN [Suspect]
     Active Substance: LINEZOLID
     Indication: TUBERCULOSIS
     Route: 065
     Dates: start: 20170814
  3. GENTALENE PLUS [Concomitant]
     Route: 065
  4. MOXIMAC [Suspect]
     Active Substance: MOXIFLOXACIN HYDROCHLORIDE
     Indication: TUBERCULOSIS
     Route: 065
     Dates: start: 20170814
  5. OMI [Concomitant]
     Indication: ANTACID THERAPY
     Route: 048
     Dates: start: 20170814
  6. LOFTAIR [Concomitant]
     Route: 055
  7. COXERIN [Suspect]
     Active Substance: CYCLOSERINE
     Indication: TUBERCULOSIS
     Route: 065
     Dates: start: 20170814
  8. LYRICA [Concomitant]
     Active Substance: PREGABALIN
     Indication: PROPHYLAXIS
     Route: 048
     Dates: start: 20170918
  9. HANSEPRAN [Suspect]
     Active Substance: CLOFAZIMINE
     Indication: TUBERCULOSIS
     Route: 065
     Dates: start: 20170814
  10. BENADON [Concomitant]
     Active Substance: PYRIDOXINE HYDROCHLORIDE
     Indication: PROPHYLAXIS
     Route: 048
     Dates: start: 20170814
  11. SIRTURO [Suspect]
     Active Substance: BEDAQUILINE FUMARATE
     Indication: TUBERCULOSIS
     Dosage: MON-WED-FRI
     Route: 048
     Dates: start: 20170817
  12. METOCLOPRAMIDE. [Concomitant]
     Active Substance: METOCLOPRAMIDE
     Indication: ANTIEMETIC SUPPORTIVE CARE
     Route: 048
     Dates: start: 20170814

REACTIONS (5)
  - Asthenia [Recovered/Resolved]
  - Hypotension [Unknown]
  - Intentional product use issue [Unknown]
  - Off label use [Unknown]
  - Otitis media acute [Recovered/Resolved]

NARRATIVE: CASE EVENT DATE: 20180926
